FAERS Safety Report 7810871-4 (Version None)
Quarter: 2011Q4

REPORT INFORMATION
  Report Type: 
  Country: None (occurrence: None)
  Receive Date: 20111013
  Receipt Date: 20111007
  Transmission Date: 20120403
  Serious: Yes (Hospitalization)
  Sender: FDA-Public Use
  Company Number: JP-BRACCO-005133

PATIENT
  Sex: Male
  Weight: 65 kg

DRUGS (2)
  1. IOPAMIDOL [Suspect]
     Indication: COMPUTERISED TOMOGRAM
     Dosage: ADMINISTERED AT 16:10 WITH ADMINISTRATION RATE: 2.5 ML/SEC FOR 40 SECONDS
     Route: 042
     Dates: start: 20110816, end: 20110816
  2. IOPAMIDOL [Suspect]
     Indication: CARCINOEMBRYONIC ANTIGEN INCREASED
     Dosage: ADMINISTERED AT 16:10 WITH ADMINISTRATION RATE: 2.5 ML/SEC FOR 40 SECONDS
     Route: 042
     Dates: start: 20110816, end: 20110816

REACTIONS (5)
  - FEELING HOT [None]
  - VOMITING [None]
  - DYSPNOEA [None]
  - NAUSEA [None]
  - OROPHARYNGEAL PAIN [None]
